FAERS Safety Report 8722467 (Version 2)
Quarter: 2012Q4

REPORT INFORMATION
  Report Type: 
  Country: IT (occurrence: IT)
  Receive Date: 20120814
  Receipt Date: 20120924
  Transmission Date: 20130627
  Serious: Yes (Hospitalization, Other)
  Sender: FDA-Public Use
  Company Number: IT-ELI_LILLY_AND_COMPANY-IT201208000993

PATIENT
  Age: 71 Year
  Sex: Male

DRUGS (12)
  1. HUMALOG LISPRO [Suspect]
     Indication: TYPE 2 DIABETES MELLITUS
     Dosage: 44 IU, qd
     Dates: start: 20120101, end: 20120726
  2. LANTUS [Concomitant]
     Indication: TYPE 2 DIABETES MELLITUS
     Dosage: 12 IU, qd
     Route: 058
     Dates: start: 20120101, end: 20120726
  3. AMLODIPINE BESYLATE [Concomitant]
     Indication: HYPERTENSION
     Dosage: 5 mg, UNK
  4. RAMIPRIL [Concomitant]
     Indication: HYPERTENSION
     Dosage: 10 mg, UNK
  5. CARVEDILOL [Concomitant]
     Indication: HYPERTENSION
     Dosage: 50 mg, UNK
  6. ACETYLSALICYLIC ACID [Concomitant]
     Indication: CARDIOVASCULAR EVENT PROPHYLAXIS
     Dosage: 100 mg, UNK
     Route: 048
     Dates: start: 20120407, end: 20120726
  7. CARVASIN [Concomitant]
     Indication: ANGINA PECTORIS
     Dosage: 1 DF, UNK
     Route: 060
  8. NITROGLYCERIN [Concomitant]
     Indication: ANGINA UNSTABLE
     Route: 062
  9. PLAVIX [Concomitant]
     Indication: CARDIOVASCULAR EVENT PROPHYLAXIS
     Dosage: 1 DF, UNK
     Dates: start: 20110601, end: 20120723
  10. DELORAZEPAM [Concomitant]
     Indication: SLEEP DISORDER
     Dosage: 15 Gtt, UNK
  11. LASIX [Concomitant]
     Dosage: 1 DF, UNK
     Route: 048
  12. TORVAST [Concomitant]
     Dosage: 1 DF, UNK
     Route: 048

REACTIONS (7)
  - Hypoglycaemic coma [Recovered/Resolved]
  - Peripheral arterial occlusive disease [Recovered/Resolved]
  - Gangrene [Recovered/Resolved]
  - Wound infection staphylococcal [Recovered/Resolved]
  - Anaemia [Unknown]
  - Chest pain [Recovered/Resolved]
  - Tongue haemorrhage [Recovered/Resolved]
